FAERS Safety Report 23979860 (Version 1)
Quarter: 2024Q2

REPORT INFORMATION
  Report Type: Spontaneous
  Country: US (occurrence: US)
  Receive Date: 20240617
  Receipt Date: 20240617
  Transmission Date: 20240716
  Serious: No
  Sender: FDA-Public Use
  Company Number: US-JNJFOC-20240611461

PATIENT
  Age: 56 Year
  Sex: Male

DRUGS (1)
  1. TALVEY [Suspect]
     Active Substance: TALQUETAMAB-TGVS
     Indication: Plasma cell myeloma
     Route: 065

REACTIONS (6)
  - Weight decreased [Unknown]
  - Salivary hyposecretion [Unknown]
  - Taste disorder [Unknown]
  - Onychomadesis [Unknown]
  - Dry skin [Unknown]
  - Fatigue [Unknown]
